FAERS Safety Report 5208802-9 (Version None)
Quarter: 2006Q4

REPORT INFORMATION
  Report Type: 
  Country: None (occurrence: None)
  Receive Date: 20061101
  Receipt Date: 20060716
  Transmission Date: 20070319
  Serious: No
  Sender: FDA-Public Use
  Company Number: 2006PV017576

PATIENT
  Age: 63 Year
  Sex: Female
  Weight: 107.0489 kg

DRUGS (4)
  1. SYMLIN [Suspect]
     Indication: DIABETES MELLITUS NON-INSULIN-DEPENDENT
     Dosage: SEE IMAGE
     Route: 058
     Dates: start: 20060604, end: 20060610
  2. SYMLIN [Suspect]
     Indication: DIABETES MELLITUS NON-INSULIN-DEPENDENT
     Dosage: SEE IMAGE
     Route: 058
     Dates: start: 20060611, end: 20060716
  3. NOVOLIN 50/50 [Concomitant]
  4. LANTUS [Concomitant]

REACTIONS (9)
  - BLOOD GLUCOSE INCREASED [None]
  - CONSTIPATION [None]
  - DECREASED APPETITE [None]
  - DIZZINESS [None]
  - FAECAL VOLUME DECREASED [None]
  - FAECES DISCOLOURED [None]
  - HYPOAESTHESIA [None]
  - PAINFUL DEFAECATION [None]
  - WEIGHT DECREASED [None]
